FAERS Safety Report 6131747-7 (Version None)
Quarter: 2009Q1

REPORT INFORMATION
  Report Type: 
  Country: None (occurrence: None)
  Receive Date: 20090325
  Receipt Date: 20090320
  Transmission Date: 20090719
  Serious: Yes (Death)
  Sender: FDA-Public Use
  Company Number: US-ROCHE-623114

PATIENT
  Sex: Male
  Weight: 90.7 kg

DRUGS (3)
  1. CAPECITABINE [Suspect]
     Indication: COLORECTAL CANCER
     Dosage: 2 WEEKS ON, 1 WEEK OFF
     Route: 048
     Dates: start: 20081215
  2. OXALIPLATIN [Concomitant]
  3. AVASTIN [Concomitant]

REACTIONS (1)
  - DEATH [None]
